FAERS Safety Report 6381670-8 (Version None)
Quarter: 2009Q3

REPORT INFORMATION
  Report Type: 
  Country: None (occurrence: None)
  Receive Date: 20090930
  Receipt Date: 20090916
  Transmission Date: 20100115
  Serious: Yes (Other)
  Sender: FDA-Public Use
  Company Number: PHHY2008CA19578

PATIENT
  Sex: Female

DRUGS (3)
  1. DIOVAN [Suspect]
     Indication: HYPERTENSION
     Dosage: 160 MG, QD
     Route: 048
     Dates: start: 20071001
  2. ATENOLOL [Concomitant]
     Dosage: 25 MG DAILY
  3. ADALAT [Concomitant]
     Dosage: 30 MG DAILY

REACTIONS (9)
  - ACNE [None]
  - CATARACT [None]
  - DYSURIA [None]
  - GLOMERULAR FILTRATION RATE DECREASED [None]
  - HYPOAESTHESIA [None]
  - LIP SWELLING [None]
  - PARAESTHESIA [None]
  - PROTEINURIA [None]
  - RENAL FAILURE [None]
